FAERS Safety Report 4877627-6 (Version None)
Quarter: 2006Q1

REPORT INFORMATION
  Report Type: 
  Country: None (occurrence: None)
  Receive Date: 20060109
  Receipt Date: 20060109
  Transmission Date: 20060701
  Serious: Yes (Life-Threatening)
  Sender: FDA-Public Use
  Company Number: None

PATIENT
  Age: 91 Year
  Sex: Female
  Weight: 49.4421 kg

DRUGS (1)
  1. METOPROLOL [Suspect]
     Indication: CARDIAC FAILURE CONGESTIVE
     Dosage: IV
     Route: 042
     Dates: start: 20040710, end: 20040711

REACTIONS (3)
  - CATATONIA [None]
  - COMA [None]
  - DEPRESSION [None]
